FAERS Safety Report 11097747 (Version 1)
Quarter: 2015Q2

REPORT INFORMATION
  Report Type: Spontaneous
  Country: US (occurrence: None)
  Receive Date: 20150507
  Receipt Date: 20150507
  Transmission Date: 20150821
  Serious: No
  Sender: FDA-Public Use
  Company Number: None

PATIENT
  Sex: Male

DRUGS (11)
  1. PREDNISONE. [Concomitant]
     Active Substance: PREDNISONE
  2. AMITRIPTYLIN [Concomitant]
     Active Substance: AMITRIPTYLINE
  3. VITAMIN D [Concomitant]
     Active Substance: CHOLECALCIFEROL
  4. ZYTIGA [Suspect]
     Active Substance: ABIRATERONE ACETATE
     Indication: NEOPLASM MALIGNANT
     Route: 048
     Dates: start: 20141118
  5. ZYTIGA [Concomitant]
     Active Substance: ABIRATERONE ACETATE
  6. ELIGARD [Concomitant]
     Active Substance: LEUPROLIDE ACETATE
  7. LISINOPRIL. [Concomitant]
     Active Substance: LISINOPRIL
  8. CENTRUM SILVER [Concomitant]
     Active Substance: VITAMINS
  9. ZOMETA [Concomitant]
     Active Substance: ZOLEDRONIC ACID
  10. CALCIUM [Concomitant]
     Active Substance: CALCIUM
  11. FLUTICASONE [Concomitant]
     Active Substance: FLUTICASONE\FLUTICASONE PROPIONATE

REACTIONS (2)
  - Hot flush [None]
  - Fatigue [None]
